FAERS Safety Report 9486662 (Version 4)
Quarter: 2014Q3

REPORT INFORMATION
  Report Type: Spontaneous
  Country: US (occurrence: US)
  Receive Date: 20130829
  Receipt Date: 20140828
  Transmission Date: 20150326
  Serious: Yes (Hospitalization, Other)
  Sender: FDA-Public Use
  Company Number: US-009507513-2010SP025234

PATIENT
  Sex: Female
  Weight: 81.65 kg

DRUGS (2)
  1. NUVARING [Suspect]
     Active Substance: ETHINYL ESTRADIOL\ETONOGESTREL
     Indication: CONTRACEPTION
     Dosage: 1 DF, QM
     Route: 067
     Dates: start: 200810, end: 20090515
  2. PENICILLIN (UNSPECIFIED) [Suspect]
     Active Substance: PENICILLIN
     Indication: PHARYNGITIS STREPTOCOCCAL

REACTIONS (18)
  - Deep vein thrombosis [Not Recovered/Not Resolved]
  - Incorrect drug administration duration [Recovered/Resolved]
  - Urinary tract infection [Unknown]
  - Pseudolymphoma [Unknown]
  - Leukopenia [Unknown]
  - Road traffic accident [Unknown]
  - Thrombophlebitis [Unknown]
  - Pharyngitis streptococcal [Unknown]
  - Anticoagulation drug level below therapeutic [Unknown]
  - Post thrombotic syndrome [Not Recovered/Not Resolved]
  - Depression [Recovered/Resolved]
  - Abnormal loss of weight [Unknown]
  - Vitamin D deficiency [Not Recovered/Not Resolved]
  - Vena cava filter insertion [Unknown]
  - Pulmonary embolism [Unknown]
  - Deep vein thrombosis [Unknown]
  - Hypokalaemia [Unknown]
  - Deep vein thrombosis [Unknown]

NARRATIVE: CASE EVENT DATE: 2009
